FAERS Safety Report 10356705 (Version 1)
Quarter: 2014Q3

REPORT INFORMATION
  Report Type: Spontaneous
  Country: US (occurrence: US)
  Receive Date: 20140801
  Receipt Date: 20140801
  Transmission Date: 20150326
  Serious: No
  Sender: FDA-Public Use
  Company Number: US-ASTRAZENECA-2014SE53550

PATIENT
  Age: 89 Year
  Sex: Female
  Weight: 73.9 kg

DRUGS (2)
  1. SYMBICORT [Suspect]
     Active Substance: BUDESONIDE\FORMOTEROL FUMARATE DIHYDRATE
     Indication: COUGH
     Dosage: 160 4.5MCG, 2 PUFFS BID
     Route: 055
     Dates: start: 20140710
  2. SYMBICORT [Suspect]
     Active Substance: BUDESONIDE\FORMOTEROL FUMARATE DIHYDRATE
     Indication: ASTHMA
     Dosage: 160 4.5MCG, 2 PUFFS BID
     Route: 055
     Dates: start: 20140710

REACTIONS (5)
  - Pain in extremity [Recovering/Resolving]
  - Peripheral coldness [Recovering/Resolving]
  - Neuropathy peripheral [Recovering/Resolving]
  - Intentional product misuse [Recovered/Resolved]
  - Dysphonia [Not Recovered/Not Resolved]

NARRATIVE: CASE EVENT DATE: 20140710
